FAERS Safety Report 26195491 (Version 1)
Quarter: 2025Q4

REPORT INFORMATION
  Report Type: Spontaneous
  Country: EU (occurrence: EU)
  Receive Date: 20251224
  Receipt Date: 20251224
  Transmission Date: 20260117
  Serious: Yes (Hospitalization)
  Sender: ACCORD
  Company Number: None

PATIENT
  Age: 59 Year
  Sex: Male
  Weight: 61 kg

DRUGS (12)
  1. FUROSEMIDE [Suspect]
     Active Substance: FUROSEMIDE
     Indication: Hypervolaemia
     Dates: start: 20251003, end: 20251006
  2. BACTRIM [Suspect]
     Active Substance: SULFAMETHOXAZOLE\TRIMETHOPRIM
     Indication: Lung disorder
     Dosage: SOLUTION FOR INJECTION FOR INFUSION
     Dates: start: 20251003, end: 20251006
  3. IOMERON [Suspect]
     Active Substance: IOMEPROL
     Indication: Computerised tomogram thorax
     Dosage: 400 (400 MG IODINE/ML)
     Dates: start: 20251003, end: 20251003
  4. ATOVAQUONE [Concomitant]
     Active Substance: ATOVAQUONE
  5. POTASSIUM CHLORIDE [Concomitant]
     Active Substance: POTASSIUM CHLORIDE
  6. HYDREA [Concomitant]
     Active Substance: HYDROXYUREA
     Dosage: STRENGTH: 500 MG
  7. PANTOPRAZOLE [Concomitant]
     Active Substance: PANTOPRAZOLE
  8. OXAZEPAM [Concomitant]
     Active Substance: OXAZEPAM
  9. ACETAMINOPHEN [Concomitant]
     Active Substance: ACETAMINOPHEN
  10. VALACYCLOVIR HYDROCHLORIDE [Concomitant]
     Active Substance: VALACYCLOVIR HYDROCHLORIDE
  11. SYMBICORT [Concomitant]
     Active Substance: BUDESONIDE\FORMOTEROL FUMARATE DIHYDRATE
     Dosage: STRENGTH: 400/12 MICROGRAMS/DOSE, POWDER FOR INHALATION
  12. TAMSULOSIN HYDROCHLORIDE [Concomitant]
     Active Substance: TAMSULOSIN HYDROCHLORIDE

REACTIONS (1)
  - Acute kidney injury [Recovered/Resolved]

NARRATIVE: CASE EVENT DATE: 20251003
